FAERS Safety Report 24367253 (Version 1)
Quarter: 2024Q3

REPORT INFORMATION
  Report Type: Spontaneous
  Country: US (occurrence: None)
  Receive Date: 20240924
  Receipt Date: 20240924
  Transmission Date: 20241016
  Serious: Yes (Other)
  Sender: Public
  Company Number: None

PATIENT
  Sex: Female

DRUGS (1)
  1. TIRZEPATIDE [Suspect]
     Active Substance: TIRZEPATIDE
     Indication: Obesity
     Dates: start: 20240501

REACTIONS (4)
  - Suicidal ideation [None]
  - Alcohol use [None]
  - Stress [None]
  - Self-injurious ideation [None]

NARRATIVE: CASE EVENT DATE: 20240513
